FAERS Safety Report 7012221-2 (Version None)
Quarter: 2010Q3

REPORT INFORMATION
  Report Type: 
  Country: None (occurrence: None)
  Receive Date: 20100924
  Receipt Date: 20100916
  Transmission Date: 20110219
  Serious: Yes (Hospitalization)
  Sender: FDA-Public Use
  Company Number: AU-NOVOPROD-314851

PATIENT
  Age: 60 Year
  Sex: Male

DRUGS (3)
  1. NOVOMIX 30 [Suspect]
     Indication: DIABETES MELLITUS
     Dosage: 30 U, QD
     Route: 058
  2. DIAMICRON [Concomitant]
  3. DIAFORMIN [Concomitant]

REACTIONS (2)
  - CONVULSION [None]
  - HYPOGLYCAEMIA [None]
